FAERS Safety Report 5426374-0 (Version None)
Quarter: 2007Q3

REPORT INFORMATION
  Report Type: 
  Country: None (occurrence: None)
  Receive Date: 20070827
  Receipt Date: 20070815
  Transmission Date: 20080115
  Serious: Yes (Other)
  Sender: FDA-Public Use
  Company Number: AU-PFIZER INC-2007050325

PATIENT
  Sex: Male
  Weight: 75 kg

DRUGS (2)
  1. SUTENT [Suspect]
     Route: 048
     Dates: start: 20070508, end: 20070523
  2. MINIPRESS [Concomitant]
     Route: 048

REACTIONS (12)
  - ANAL ULCER [None]
  - ARTHRALGIA [None]
  - DRUG TOLERANCE DECREASED [None]
  - HEPATITIS [None]
  - MALAISE [None]
  - MOUTH ULCERATION [None]
  - NAUSEA [None]
  - NEUTROPENIA [None]
  - PYREXIA [None]
  - THROMBOCYTOPENIA [None]
  - VOMITING [None]
  - WEIGHT DECREASED [None]
